FAERS Safety Report 6075453-6 (Version None)
Quarter: 2009Q1

REPORT INFORMATION
  Report Type: 
  Country: None (occurrence: None)
  Receive Date: 20090212
  Receipt Date: 20090209
  Transmission Date: 20090719
  Serious: Yes (Other)
  Sender: FDA-Public Use
  Company Number: A0767463A

PATIENT
  Age: 79 Year
  Sex: Female

DRUGS (7)
  1. VERAMYST [Suspect]
     Dosage: 1SPR IN THE MORNING
     Route: 045
  2. THYROID MEDICATION [Concomitant]
  3. PREMARIN [Concomitant]
  4. PROVERA [Concomitant]
  5. ADVIL LIQUI-GELS [Concomitant]
  6. MAALOX [Concomitant]
  7. GAS-X [Concomitant]

REACTIONS (6)
  - EYE HAEMORRHAGE [None]
  - EYE PAIN [None]
  - EYE SWELLING [None]
  - HAEMOPTYSIS [None]
  - NASAL POLYPS [None]
  - SNEEZING [None]
